FAERS Safety Report 6310395-X (Version None)
Quarter: 2009Q3

REPORT INFORMATION
  Report Type: 
  Country: None (occurrence: None)
  Receive Date: 20090814
  Receipt Date: 20090803
  Transmission Date: 20100115
  Serious: Yes (Other)
  Sender: FDA-Public Use
  Company Number: US-CELGENEUS-163-20785-09080874

PATIENT
  Age: 74 Year
  Sex: Male

DRUGS (5)
  1. THALOMID [Suspect]
     Route: 048
  2. PREDNISONE [Concomitant]
     Route: 065
  3. ROPINIROLE [Concomitant]
     Indication: PARKINSON'S DISEASE
     Route: 065
  4. CARBIDOPA-LEVODOPA [Concomitant]
     Indication: PARKINSON'S DISEASE
     Route: 065
  5. ENTACAPONE [Concomitant]
     Indication: PARKINSON'S DISEASE
     Route: 065

REACTIONS (1)
  - PARKINSON'S DISEASE [None]
